FAERS Safety Report 16244001 (Version 1)
Quarter: 2019Q2

REPORT INFORMATION
  Report Type: Spontaneous
  Country: FR (occurrence: FR)
  Receive Date: 20190426
  Receipt Date: 20190426
  Transmission Date: 20190711
  Serious: Yes (Death)
  Sender: FDA-Public Use
  Company Number: FR-MYLANLABS-2019M1037879

PATIENT
  Age: 76 Year
  Sex: Male
  Weight: 73 kg

DRUGS (11)
  1. KARDEGIC [Suspect]
     Active Substance: ASPIRIN DL-LYSINE
     Indication: PROPHYLAXIS
     Dosage: 1 DOSAGE FORM, QD
     Route: 048
     Dates: end: 20180217
  2. PREDNISONE. [Suspect]
     Active Substance: PREDNISONE
     Indication: HYPERTHYROIDISM
     Dosage: 40 MILLIGRAM, QD
     Route: 048
  3. NEO-MERCAZOLE [Concomitant]
     Active Substance: CARBIMAZOLE
  4. IMOVANE [Concomitant]
     Active Substance: ZOPICLONE
  5. QUESTRAN [Concomitant]
     Active Substance: CHOLESTYRAMINE
  6. CORGARD [Concomitant]
     Active Substance: NADOLOL
     Dosage: UNK
  7. BRILIQUE [Suspect]
     Active Substance: TICAGRELOR
     Indication: PROPHYLAXIS
     Dosage: 2 DOSAGE FORM, QD
     Route: 048
     Dates: start: 20170924, end: 20180217
  8. PANTOPRAZOLE [Concomitant]
     Active Substance: PANTOPRAZOLE
  9. TAHOR [Concomitant]
     Active Substance: ATORVASTATIN CALCIUM
  10. RAMIPRIL. [Concomitant]
     Active Substance: RAMIPRIL
  11. FUROSEMIDE. [Concomitant]
     Active Substance: FUROSEMIDE
     Dosage: UNK

REACTIONS (3)
  - Gastric ulcer haemorrhage [Fatal]
  - Shock haemorrhagic [Fatal]
  - Anaemia [Fatal]

NARRATIVE: CASE EVENT DATE: 20180217
